FAERS Safety Report 6050227-0 (Version None)
Quarter: 2009Q1

REPORT INFORMATION
  Report Type: 
  Country: None (occurrence: None)
  Receive Date: 20090121
  Receipt Date: 20090113
  Transmission Date: 20090719
  Serious: Yes (Death)
  Sender: FDA-Public Use
  Company Number: 2008JP005742

PATIENT
  Age: 61 Year
  Sex: Female

DRUGS (11)
  1. PROGRAF [Suspect]
     Indication: RHEUMATOID ARTHRITIS
     Dosage: 0.5 MG, BID, ORAL
     Route: 048
     Dates: start: 20081011
  2. CELECOXIB [Suspect]
     Indication: RHEUMATOID ARTHRITIS
     Dosage: BID, ORAL
     Route: 048
     Dates: start: 20080729
  3. LIPITOR [Concomitant]
  4. RHEUMATREX [Concomitant]
  5. PREDNISOLONE [Concomitant]
  6. FOLIAMN (FOLIC ACID) [Concomitant]
  7. ACTONEL [Concomitant]
  8. ASPIRIN [Concomitant]
  9. MUCOSTA (REBAMIPIDE) [Concomitant]
  10. LOSARTAN POTASSIUM [Concomitant]
  11. LANSOPRAZOLE [Concomitant]

REACTIONS (5)
  - ACUTE MYOCARDIAL INFARCTION [None]
  - CARDIO-RESPIRATORY ARREST [None]
  - PELVIC FRACTURE [None]
  - THROMBOSIS IN DEVICE [None]
  - VASCULAR STENOSIS [None]
